FAERS Safety Report 11237977 (Version 1)
Quarter: 2015Q3

REPORT INFORMATION
  Report Type: Spontaneous
  Country: DE (occurrence: DE)
  Receive Date: 20150703
  Receipt Date: 20150703
  Transmission Date: 20151125
  Serious: Yes (Life-Threatening, Disabling)
  Sender: FDA-Public Use
  Company Number: DE-AMGEN-DEUSP2015064563

PATIENT
  Age: 56 Year
  Sex: Male
  Weight: 74 kg

DRUGS (2)
  1. NEUPOGEN [Suspect]
     Active Substance: FILGRASTIM
     Indication: STEM CELL TRANSPLANT
     Dosage: ^300-0-300, 8.1 MUG/KG, KG/24 H^
     Route: 058
     Dates: start: 20141113, end: 20141117
  2. CITALOPRAM [Concomitant]
     Active Substance: CITALOPRAM HYDROBROMIDE
     Indication: MIGRAINE
     Dosage: 5 MG, UNK
     Route: 048

REACTIONS (1)
  - Nodular melanoma [Unknown]

NARRATIVE: CASE EVENT DATE: 20150202
